FAERS Safety Report 12643908 (Version 1)
Quarter: 2016Q3

REPORT INFORMATION
  Report Type: Spontaneous
  Country: US (occurrence: US)
  Receive Date: 20160811
  Receipt Date: 20160811
  Transmission Date: 20161109
  Serious: No
  Sender: FDA-Public Use
  Company Number: GXBR2015US002709

PATIENT
  Sex: Male

DRUGS (1)
  1. BACITRACIN ZINC. [Suspect]
     Active Substance: BACITRACIN ZINC
     Indication: SKIN ABRASION
     Dosage: UNK DF, UNK
     Route: 061

REACTIONS (1)
  - Application site discolouration [Not Recovered/Not Resolved]
